FAERS Safety Report 24732421 (Version 1)
Quarter: 2024Q4

REPORT INFORMATION
  Report Type: Report from Study
  Country: US (occurrence: US)
  Receive Date: 20241213
  Receipt Date: 20241213
  Transmission Date: 20250115
  Serious: Yes (Other)
  Sender: ABBVIE
  Company Number: US-ABBVIE-6043607

PATIENT
  Sex: Male

DRUGS (3)
  1. DUOPA [Suspect]
     Active Substance: CARBIDOPA\LEVODOPA
     Indication: Parkinson^s disease
     Dosage: FORM STRENGTH:4.63-20MG/??1 CASSETTE VIA PEG-J FOR UP TO 24 HOURS EACH DAY.?MORNING DOSE: 2 ML; C...
     Route: 050
     Dates: start: 202111
  2. DUOPA [Suspect]
     Active Substance: CARBIDOPA\LEVODOPA
  3. XEOMIN [Concomitant]
     Active Substance: INCOBOTULINUMTOXINA
     Indication: Product used for unknown indication
     Dosage: SDV

REACTIONS (1)
  - Pelvic fracture [Unknown]
